FAERS Safety Report 4618127-8 (Version None)
Quarter: 2005Q1

REPORT INFORMATION
  Report Type: 
  Country: None (occurrence: None)
  Receive Date: 20050323
  Receipt Date: 20050309
  Transmission Date: 20050727
  Serious: Yes (Hospitalization)
  Sender: FDA-Public Use
  Company Number: TCI2004A03013

PATIENT
  Age: 45 Year
  Sex: Female

DRUGS (13)
  1. ACTOS [Suspect]
     Indication: DIABETES MELLITUS NON-INSULIN-DEPENDENT
     Dosage: 15 MG (15 MG, 1 D) PER ORAL
     Route: 048
     Dates: start: 20040607, end: 20040628
  2. LORAZEPAM [Suspect]
     Dosage: 3 MG (1 MG, 3 IN 1 D) PER ORAL
     Route: 048
  3. ALPRAZOLAM [Suspect]
     Dosage: 0.8 MG (0.8 MG, 1 IN 1 D) PER ORAL
     Route: 048
  4. HALCION [Suspect]
     Dosage: 0.5 MG (0.5 MG, 1 IN 1 D) PER ORAL
     Route: 048
  5. PAXIL [Concomitant]
  6. RISPERDAL [Concomitant]
  7. ATARAX [Concomitant]
  8. KAMISHOUYOUSAN (KAMISHOUYOUSAN) [Concomitant]
  9. BEZATOL-SR (BEZAFIBRATE) [Concomitant]
  10. RABEPRAZOLE SODIUM [Concomitant]
  11. METFORMIN HYDROCHLORIDE [Concomitant]
  12. STOGAR (LAFUTIDINE) [Concomitant]
  13. FLUTIDE (FLUTICASONE PROPIONATE) [Concomitant]

REACTIONS (27)
  - ANAEMIA [None]
  - ASTHMA [None]
  - BACK PAIN [None]
  - BLOOD PRESSURE SYSTOLIC DECREASED [None]
  - CARDIAC FAILURE [None]
  - CARDIOMEGALY [None]
  - CHEST PAIN [None]
  - DIABETES MELLITUS INADEQUATE CONTROL [None]
  - DIZZINESS [None]
  - DYSPNOEA [None]
  - ELECTROCARDIOGRAM POOR R-WAVE PROGRESSION [None]
  - ELECTROCARDIOGRAM T WAVE INVERSION [None]
  - EXERCISE ELECTROCARDIOGRAM ABNORMAL [None]
  - GLYCOSYLATED HAEMOGLOBIN INCREASED [None]
  - HEART RATE INCREASED [None]
  - HYPERCAPNIA [None]
  - HYPERINSULINAEMIA [None]
  - HYPOVENTILATION [None]
  - HYPOXIA [None]
  - MENTAL DISORDER [None]
  - MITRAL VALVE PROLAPSE [None]
  - OBESITY [None]
  - OEDEMA PERIPHERAL [None]
  - PLEURAL EFFUSION [None]
  - PULMONARY CONGESTION [None]
  - SLEEP APNOEA SYNDROME [None]
  - SNORING [None]
